FAERS Safety Report 24109705 (Version 1)
Quarter: 2024Q3

REPORT INFORMATION
  Report Type: Spontaneous
  Country: CR (occurrence: CR)
  Receive Date: 20240718
  Receipt Date: 20240718
  Transmission Date: 20241017
  Serious: Yes (Life-Threatening)
  Sender: PFIZER
  Company Number: CR-PFIZER INC-202400215317

PATIENT
  Age: 60 Year
  Sex: Male

DRUGS (1)
  1. XELJANZ [Suspect]
     Active Substance: TOFACITINIB CITRATE
     Indication: Colitis ulcerative
     Dosage: 10 MG, 2X/DAY (EVERY 12 HOURS)
     Dates: start: 20171221

REACTIONS (3)
  - Malignant melanoma [Recovering/Resolving]
  - Skin atrophy [Recovering/Resolving]
  - Hepatitis A [Recovered/Resolved]

NARRATIVE: CASE EVENT DATE: 20230607
